FAERS Safety Report 9762730 (Version 1)
Quarter: 2013Q4

REPORT INFORMATION
  Report Type: Spontaneous
  Country: US (occurrence: US)
  Receive Date: 20131216
  Receipt Date: 20131216
  Transmission Date: 20140711
  Serious: No
  Sender: FDA-Public Use
  Company Number: US-B.I. PHARMACEUTICALS,INC./RIDGEFIELD-2013-BI-40640BP

PATIENT
  Sex: Female

DRUGS (3)
  1. GILOTRIF [Suspect]
     Indication: LUNG NEOPLASM MALIGNANT
     Dosage: 40 MG
     Route: 048
     Dates: start: 201311, end: 20131204
  2. CETUXIMAB [Concomitant]
     Indication: LUNG NEOPLASM MALIGNANT
     Dates: start: 201311, end: 20131204
  3. ERLOTINIB [Concomitant]
     Indication: LUNG NEOPLASM MALIGNANT

REACTIONS (3)
  - Blood blister [Not Recovered/Not Resolved]
  - Oedema peripheral [Not Recovered/Not Resolved]
  - Off label use [Unknown]
